FAERS Safety Report 24720986 (Version 1)
Quarter: 2024Q4

REPORT INFORMATION
  Report Type: Spontaneous
  Country: GB (occurrence: GB)
  Receive Date: 20241211
  Receipt Date: 20241211
  Transmission Date: 20250115
  Serious: Yes (Other)
  Sender: AUROBINDO
  Company Number: GB-MHRA-MED-202411271202585440-DJVFW

PATIENT
  Age: 81 Year
  Sex: Female
  Weight: 68 kg

DRUGS (1)
  1. ATORVASTATIN [Suspect]
     Active Substance: ATORVASTATIN
     Indication: Adverse drug reaction
     Dosage: 10 MILLIGRAM
     Route: 065

REACTIONS (1)
  - Nocturia [Not Recovered/Not Resolved]
